FAERS Safety Report 8106592-3 (Version None)
Quarter: 2012Q1

REPORT INFORMATION
  Report Type: 
  Country: None (occurrence: None)
  Receive Date: 20120202
  Receipt Date: 20120124
  Transmission Date: 20120608
  Serious: Yes (Hospitalization)
  Sender: FDA-Public Use
  Company Number: US-BAYER-2011-075114

PATIENT
  Age: 42 Year
  Sex: Female
  Weight: 58.957 kg

DRUGS (8)
  1. DROSPIRENONE AND ETHINYL ESTRADIOL [Suspect]
     Dosage: UNK
     Dates: start: 20081215, end: 20090707
  2. YAZ [Suspect]
     Dosage: UNK
     Dates: start: 20090729
  3. YASMIN [Suspect]
     Dosage: UNK
     Dates: start: 20081203
  4. VICOPROFEN [Concomitant]
     Dosage: 7.5/200 MG
     Route: 048
  5. KETOROLAC TROMETHAMINE [Concomitant]
     Dosage: 10 MG
     Route: 048
  6. YAZ [Suspect]
     Indication: VAGINAL HAEMORRHAGE
     Dosage: UNK
     Dates: start: 20071002, end: 20081203
  7. YAZ [Suspect]
     Dosage: UNK
     Dates: start: 20090814
  8. FLAGYL [Concomitant]
     Dosage: 500 MG
     Route: 048

REACTIONS (3)
  - INJURY [None]
  - DEEP VEIN THROMBOSIS [None]
  - PAIN [None]
